FAERS Safety Report 6526102-1 (Version None)
Quarter: 2010Q1

REPORT INFORMATION
  Report Type: 
  Country: None (occurrence: None)
  Receive Date: 20100104
  Receipt Date: 20091221
  Transmission Date: 20100710
  Serious: Yes (Other)
  Sender: FDA-Public Use
  Company Number: DE-PFIZER INC-2009289337

PATIENT
  Age: 40 Year
  Sex: Female

DRUGS (2)
  1. PHENYTOIN AND PHENYTOIN SODIUM [Suspect]
     Indication: PSYCHOMOTOR SEIZURES
     Dosage: 500 MG, UNK
     Route: 040
  2. PHENYTOIN AND PHENYTOIN SODIUM [Suspect]
     Dosage: 500 MG OVER 12 HOURS
     Route: 042

REACTIONS (1)
  - PURPLE GLOVE SYNDROME [None]
